FAERS Safety Report 5233877-0 (Version None)
Quarter: 2007Q1

REPORT INFORMATION
  Report Type: 
  Country: None (occurrence: None)
  Receive Date: 20070208
  Receipt Date: 20070129
  Transmission Date: 20070707
  Serious: Yes (Hospitalization)
  Sender: FDA-Public Use
  Company Number: HQWYE903727JAN05

PATIENT
  Sex: Female
  Weight: 95.2 kg

DRUGS (22)
  1. RAPAMUNE [Suspect]
     Indication: PROPHYLAXIS AGAINST TRANSPLANT REJECTION
     Dosage: 15 MG LOADING DOSE
     Route: 048
     Dates: start: 20050121, end: 20050101
  2. RAPAMUNE [Suspect]
     Route: 048
     Dates: start: 20050101
  3. RAPAMUNE [Suspect]
     Route: 048
  4. ZOCOR [Concomitant]
     Route: 065
  5. ZOLOFT [Concomitant]
     Route: 065
  6. NEPHRO-VITE RX [Concomitant]
     Dosage: 1 DAILY
     Route: 065
  7. ACTOS [Concomitant]
     Route: 065
  8. CALCIUM CARBONATE [Concomitant]
     Dosage: 2 AFTER EACH MEAL
     Route: 065
  9. ASPIRIN [Concomitant]
     Dosage: 1 DAILY
     Route: 065
  10. BENADRYL [Concomitant]
     Dosage: 25 MG AS NEEDED
     Route: 065
  11. LANTUS [Concomitant]
     Route: 065
  12. TRAVATAN [Concomitant]
     Dosage: ONE DROP EACH EYE DAILY
     Route: 047
  13. HEPARIN [Suspect]
     Indication: THROMBOSIS PROPHYLAXIS
     Route: 058
     Dates: start: 20050120, end: 20050121
  14. HEPARIN [Suspect]
     Indication: PROPHYLAXIS
     Dosage: UNKNOWN
     Route: 042
     Dates: start: 20050122, end: 20050123
  15. HEPARIN [Suspect]
     Dosage: UNKNOWN
     Route: 065
     Dates: start: 20050124, end: 20050101
  16. ULTRACET [Concomitant]
     Dosage: UNSPECIFIED DOSE AS NEEDED
     Route: 065
  17. NEURONTIN [Concomitant]
     Route: 065
  18. SYSTANE [Concomitant]
     Dosage: 3 DROPS DAILY EACH EYE
     Route: 047
  19. CELLCEPT [Concomitant]
     Indication: PROPHYLAXIS AGAINST TRANSPLANT REJECTION
     Dosage: UNSPECIFIED
     Route: 065
  20. PREDNISONE [Concomitant]
     Indication: PROPHYLAXIS AGAINST TRANSPLANT REJECTION
     Dosage: UNSPECIFIED
     Route: 065
  21. LASIX [Concomitant]
     Dosage: UNKNOWN
     Route: 065
  22. RENAGEL [Concomitant]
     Dosage: 2 WITH MEALS
     Route: 065

REACTIONS (12)
  - ALANINE AMINOTRANSFERASE INCREASED [None]
  - ANAEMIA [None]
  - ASPARTATE AMINOTRANSFERASE INCREASED [None]
  - ATRIAL FIBRILLATION [None]
  - HAEMATEMESIS [None]
  - HAEMATOMA [None]
  - HAEMORRHAGE [None]
  - HYPOTENSION [None]
  - NAUSEA [None]
  - TACHYCARDIA [None]
  - THROMBOCYTOPENIA [None]
  - VOMITING [None]
